FAERS Safety Report 7944905-3 (Version None)
Quarter: 2011Q4

REPORT INFORMATION
  Report Type: 
  Country: None (occurrence: None)
  Receive Date: 20111122
  Receipt Date: 20111117
  Transmission Date: 20120403
  Serious: Yes (Death)
  Sender: FDA-Public Use
  Company Number: 2011SP053960

PATIENT
  Age: 65 Year
  Sex: Female

DRUGS (2)
  1. SYCREST (ASENAPINE /05706901/) [Suspect]
     Indication: PRODUCT USED FOR UNKNOWN INDICATION
     Dosage: 10 MG; QD;, 20 MG;QD;
     Dates: start: 20111113, end: 20111114
  2. SYCREST (ASENAPINE /05706901/) [Suspect]
     Indication: PRODUCT USED FOR UNKNOWN INDICATION
     Dosage: 10 MG; QD;, 20 MG;QD;
     Dates: start: 20111111, end: 20111111

REACTIONS (1)
  - CARDIAC ARREST [None]
